FAERS Safety Report 4704530-4 (Version None)
Quarter: 2005Q2

REPORT INFORMATION
  Report Type: 
  Country: None (occurrence: None)
  Receive Date: 20050629
  Receipt Date: 20050617
  Transmission Date: 20051028
  Serious: Yes (Other)
  Sender: FDA-Public Use
  Company Number: 8010886

PATIENT
  Age: 17 Year
  Sex: Male

DRUGS (3)
  1. KEPPRA [Suspect]
     Indication: EPILEPSY
     Dosage: 1500 MG /D PO
     Route: 048
     Dates: start: 20040101, end: 20050101
  2. KEPPRA [Suspect]
     Indication: EPILEPSY
     Dosage: 2000 MG /D PO
     Route: 048
     Dates: start: 20050216, end: 20050101
  3. KEPPRA [Suspect]
     Indication: EPILEPSY
     Dosage: 1750 MG /D PO
     Route: 048
     Dates: start: 20050101

REACTIONS (5)
  - CONTUSION [None]
  - HAEMORRHAGE [None]
  - HEADACHE [None]
  - OEDEMA [None]
  - THROMBOCYTOPENIA [None]
